FAERS Safety Report 8061516-2 (Version None)
Quarter: 2012Q1

REPORT INFORMATION
  Report Type: 
  Country: None (occurrence: None)
  Receive Date: 20120120
  Receipt Date: 20111227
  Transmission Date: 20120608
  Serious: Yes (Other)
  Sender: FDA-Public Use
  Company Number: US-ALLERGAN-1116820US

PATIENT
  Sex: Female

DRUGS (1)
  1. RESTASIS [Suspect]
     Indication: LACRIMATION DECREASED
     Dosage: USES A DIFFERENT AMOUNT EACH DAY
     Route: 047
     Dates: start: 20090707

REACTIONS (4)
  - DIZZINESS [None]
  - EYELID DISORDER [None]
  - DRUG INEFFECTIVE [None]
  - WRONG TECHNIQUE IN DRUG USAGE PROCESS [None]
